FAERS Safety Report 19098181 (Version 2)
Quarter: 2021Q2

REPORT INFORMATION
  Report Type: Spontaneous
  Country: DE (occurrence: DE)
  Receive Date: 20210406
  Receipt Date: 20210608
  Transmission Date: 20210717
  Serious: Yes (Life-Threatening, Hospitalization, Other)
  Sender: FDA-Public Use
  Company Number: DE-ELI_LILLY_AND_COMPANY-DE202104000332

PATIENT
  Age: 56 Year
  Sex: Female

DRUGS (1)
  1. OLUMIANT [Suspect]
     Active Substance: BARICITINIB
     Indication: RHEUMATOID ARTHRITIS
     Dosage: 4 MG, DAILY
     Route: 048
     Dates: start: 20170321, end: 20200624

REACTIONS (6)
  - Febrile neutropenia [Recovered/Resolved]
  - Pancytopenia [Recovered/Resolved]
  - Laboratory test abnormal [Recovered/Resolved]
  - Chills [Recovered/Resolved]
  - Somnolence [Recovered/Resolved]
  - Rhinitis [Recovered/Resolved]

NARRATIVE: CASE EVENT DATE: 20200629
